FAERS Safety Report 24344425 (Version 2)
Quarter: 2024Q3

REPORT INFORMATION
  Report Type: Spontaneous
  Country: US (occurrence: US)
  Receive Date: 20240920
  Receipt Date: 20240926
  Transmission Date: 20241017
  Serious: Yes (Other)
  Sender: BAYER
  Company Number: US-BAYER-2024A130137

PATIENT
  Age: 57 Year
  Sex: Female

DRUGS (1)
  1. CLIMARA PRO [Suspect]
     Active Substance: ESTRADIOL\LEVONORGESTREL
     Indication: Menopause
     Dosage: UNK
     Route: 062
     Dates: start: 20240811

REACTIONS (3)
  - Postmenopausal haemorrhage [None]
  - Product adhesion issue [None]
  - Hot flush [None]

NARRATIVE: CASE EVENT DATE: 20240811
